FAERS Safety Report 6703880-X (Version None)
Quarter: 2010Q2

REPORT INFORMATION
  Report Type: 
  Country: None (occurrence: None)
  Receive Date: 20100430
  Receipt Date: 20100418
  Transmission Date: 20101027
  Serious: No
  Sender: FDA-Public Use
  Company Number: US-B.I. PHARMACEUTICALS,INC./RIDGEFIELD-2010-BP-04507BP

PATIENT
  Sex: Female

DRUGS (11)
  1. SPIRIVA [Suspect]
     Indication: CHRONIC OBSTRUCTIVE PULMONARY DISEASE
     Dosage: 18 MCG
     Route: 055
     Dates: start: 20100304
  2. RANITIDINE [Concomitant]
     Indication: ULCER
     Dates: start: 20000101
  3. OXYBUTYNIN CHLORIDE [Concomitant]
     Indication: HYPERTONIC BLADDER
     Dosage: 5 MG
     Dates: start: 20000101
  4. ADVAIR DISKUS 100/50 [Concomitant]
     Indication: CHRONIC OBSTRUCTIVE PULMONARY DISEASE
     Dates: start: 20000101
  5. ADVAIR DISKUS 100/50 [Concomitant]
     Indication: BRONCHITIS
  6. ADVAIR DISKUS 100/50 [Concomitant]
     Indication: ASTHMA
  7. NEBULIZER IPRATROPIUM/ALBUTEROL [Concomitant]
     Indication: CHRONIC OBSTRUCTIVE PULMONARY DISEASE
     Route: 055
     Dates: start: 20000101
  8. NEBULIZER IPRATROPIUM/ALBUTEROL [Concomitant]
     Indication: BRONCHITIS
  9. NEBULIZER IPRATROPIUM/ALBUTEROL [Concomitant]
     Indication: ASTHMA
  10. ERYTHROMYCIN [Concomitant]
     Indication: BRONCHITIS
     Dates: start: 20000101
  11. ALPRAZOLAM [Concomitant]
     Indication: ANXIETY
     Dates: start: 20000101

REACTIONS (2)
  - BLOOD PRESSURE INCREASED [None]
  - SOMNOLENCE [None]
